FAERS Safety Report 7952738-7 (Version None)
Quarter: 2011Q4

REPORT INFORMATION
  Report Type: 
  Country: None (occurrence: None)
  Receive Date: 20111201
  Receipt Date: 20111129
  Transmission Date: 20120403
  Serious: Yes (Other)
  Sender: FDA-Public Use
  Company Number: CO-ABBOTT-11P-036-0879281-00

PATIENT
  Sex: Male
  Weight: 103 kg

DRUGS (2)
  1. HUMIRA [Suspect]
     Indication: PSORIASIS
     Route: 058
     Dates: start: 20090611
  2. FISH OIL [Concomitant]
     Indication: HYPERTRIGLYCERIDAEMIA

REACTIONS (4)
  - ANGINA PECTORIS [None]
  - DYSPNOEA [None]
  - HYPERHIDROSIS [None]
  - CHEST PAIN [None]
